FAERS Safety Report 14943635 (Version 2)
Quarter: 2018Q2

REPORT INFORMATION
  Report Type: Spontaneous
  Country: US (occurrence: US)
  Receive Date: 20180528
  Receipt Date: 20180606
  Transmission Date: 20180711
  Serious: No
  Sender: FDA-Public Use
  Company Number: US-TEVA-2018-US-896055

PATIENT
  Age: 85 Year
  Sex: Female

DRUGS (2)
  1. PROAIR HFA [Suspect]
     Active Substance: ALBUTEROL SULFATE
     Indication: CHEST DISCOMFORT
     Route: 065
     Dates: start: 20180510
  2. PROAIR HFA [Suspect]
     Active Substance: ALBUTEROL SULFATE
     Indication: TRIGEMINAL NEURALGIA

REACTIONS (9)
  - Blood pressure increased [Unknown]
  - Wrong technique in product usage process [Unknown]
  - Productive cough [Unknown]
  - Heart rate increased [Unknown]
  - Nasal congestion [Unknown]
  - Blood pressure decreased [Unknown]
  - Incorrect drug administration duration [Unknown]
  - Pain [Unknown]
  - Incorrect dose administered [Unknown]
